FAERS Safety Report 7347291-5 (Version None)
Quarter: 2011Q1

REPORT INFORMATION
  Report Type: 
  Country: None (occurrence: None)
  Receive Date: 20110311
  Receipt Date: 20110228
  Transmission Date: 20110831
  Serious: Yes (Other)
  Sender: FDA-Public Use
  Company Number: PHHY2011GB13415

PATIENT
  Age: 38 Year
  Sex: Male

DRUGS (2)
  1. SUMATRIPTAN SUCCINATE [Suspect]
  2. SERTRALINE HYDROCHLORIDE [Interacting]
     Dosage: 300 MG, UNK

REACTIONS (3)
  - DRUG INTERACTION [None]
  - APPENDICITIS [None]
  - OVERDOSE [None]
